FAERS Safety Report 4824495-4 (Version None)
Quarter: 2005Q4

REPORT INFORMATION
  Report Type: 
  Country: None (occurrence: None)
  Receive Date: 20051110
  Receipt Date: 20051026
  Transmission Date: 20060501
  Serious: Yes (Death)
  Sender: FDA-Public Use
  Company Number: JP-BOEHRINGER INGELHEIM PHARMACEUTICALS, INC.-2005-BP-18847NB

PATIENT
  Sex: Female
  Weight: 43.6 kg

DRUGS (11)
  1. SPIRIVA [Suspect]
     Indication: BRONCHITIS CHRONIC
     Route: 055
     Dates: start: 20050819, end: 20050819
  2. RISPERDAL [Suspect]
     Indication: CHARLES BONNET SYNDROME
     Route: 048
     Dates: start: 20050215, end: 20050820
  3. SENNOSIDE [Concomitant]
     Indication: CONSTIPATION
     Route: 048
     Dates: start: 20000401, end: 20050820
  4. QUETIAPINE FUMARATE [Concomitant]
     Indication: CHARLES BONNET SYNDROME
     Route: 048
     Dates: start: 20041101, end: 20050820
  5. BROMHEXINE HYDROCHLORIDE [Concomitant]
     Indication: BRONCHITIS CHRONIC
     Route: 048
     Dates: start: 20050801, end: 20050820
  6. TULOBUTEROL [Concomitant]
     Indication: BRONCHITIS CHRONIC
     Route: 062
     Dates: start: 20050801, end: 20050820
  7. PREDNISOLONE [Concomitant]
     Indication: RHEUMATOID ARTHRITIS
     Route: 048
     Dates: start: 19970901, end: 20050820
  8. ODRIC (TRANDOLAPRIL) [Concomitant]
     Indication: HYPERTENSION
     Route: 048
     Dates: start: 20001101, end: 20050820
  9. CYTOTEC [Concomitant]
     Route: 048
     Dates: start: 19970901, end: 20050820
  10. LORFENAMIN [Concomitant]
     Route: 048
     Dates: start: 19970901, end: 20050820
  11. RIMATIL [Concomitant]
     Indication: RHEUMATOID ARTHRITIS
     Route: 048
     Dates: start: 20041201, end: 20050820

REACTIONS (1)
  - SUDDEN DEATH [None]
